FAERS Safety Report 7728157-5 (Version None)
Quarter: 2011Q3

REPORT INFORMATION
  Report Type: 
  Country: None (occurrence: None)
  Receive Date: 20110905
  Receipt Date: 20110830
  Transmission Date: 20111222
  Serious: Yes (Hospitalization, Other)
  Sender: FDA-Public Use
  Company Number: US-BRISTOL-MYERS SQUIBB COMPANY-15999246

PATIENT
  Age: 75 Year
  Sex: Male

DRUGS (2)
  1. COUMADIN [Suspect]
     Indication: FACTOR V LEIDEN MUTATION
     Route: 048
     Dates: start: 20050101
  2. LOVENOX [Suspect]
     Dates: start: 20110818

REACTIONS (2)
  - SPINAL COLUMN STENOSIS [None]
  - INTERNATIONAL NORMALISED RATIO ABNORMAL [None]
